FAERS Safety Report 8811665 (Version 1)
Quarter: 2012Q4

REPORT INFORMATION
  Report Type: 
  Country: US (occurrence: US)
  Receive Date: 20120927
  Receipt Date: 20120927
  Transmission Date: 20130627
  Serious: No
  Sender: FDA-Public Use
  Company Number: US-MUTUAL PHARMACEUTICAL COMPANY, INC.-BCTM20120004

PATIENT
  Sex: Male

DRUGS (1)
  1. BACTRIM TABLETS [Suspect]
     Indication: STAPHYLOCOCCAL INFECTION
     Route: 065
     Dates: start: 200908

REACTIONS (3)
  - Hypertension [Not Recovered/Not Resolved]
  - Rash [Recovered/Resolved]
  - Drug hypersensitivity [None]
